FAERS Safety Report 10476608 (Version 6)
Quarter: 2015Q1

REPORT INFORMATION
  Report Type: Spontaneous
  Country: BR (occurrence: BR)
  Receive Date: 20140925
  Receipt Date: 20150219
  Transmission Date: 20150720
  Serious: Yes (Other)
  Sender: FDA-Public Use
  Company Number: BR-SA-2014SA119538

PATIENT
  Age: 28 Year
  Sex: Female
  Weight: 89 kg

DRUGS (2)
  1. METHYLDOPA. [Concomitant]
     Active Substance: METHYLDOPA
     Indication: BLOOD PRESSURE ABNORMAL
     Dosage: DOSE: ONE TIME A DAY
     Dates: start: 20140720
  2. CLEXANE SAFETY LOCK [Suspect]
     Active Substance: ENOXAPARIN SODIUM
     Indication: THROMBOSIS
     Dosage: ROUTE: INJECTABLE
     Route: 065
     Dates: start: 20140801

REACTIONS (4)
  - Pulmonary embolism [Not Recovered/Not Resolved]
  - Amniotic fluid volume decreased [Not Recovered/Not Resolved]
  - Exposure during pregnancy [Unknown]
  - Abortion [Unknown]

NARRATIVE: CASE EVENT DATE: 20140801
